FAERS Safety Report 6941317-6 (Version None)
Quarter: 2010Q3

REPORT INFORMATION
  Report Type: 
  Country: None (occurrence: None)
  Receive Date: 20100825
  Receipt Date: 20100811
  Transmission Date: 20110219
  Serious: No
  Sender: FDA-Public Use
  Company Number: US-B.I. PHARMACEUTICALS,INC./RIDGEFIELD-2010-BP-09190BP

PATIENT
  Sex: Female

DRUGS (3)
  1. SPIRIVA [Suspect]
     Indication: BRONCHITIS CHRONIC
     Dosage: 18 MCG
     Route: 055
     Dates: start: 20061101, end: 20100601
  2. SYMBICORT [Concomitant]
     Indication: BRONCHITIS CHRONIC
  3. ALBUTEROL [Concomitant]
     Indication: BRONCHITIS CHRONIC

REACTIONS (5)
  - ANXIETY [None]
  - ASTHENIA [None]
  - POST-TRAUMATIC STRESS DISORDER [None]
  - TACHYCARDIA [None]
  - VISION BLURRED [None]
